FAERS Safety Report 19037033 (Version 2)
Quarter: 2022Q2

REPORT INFORMATION
  Report Type: Report from Study
  Country: None (occurrence: US)
  Receive Date: 20210322
  Receipt Date: 20220414
  Transmission Date: 20220721
  Serious: Yes (Hospitalization)
  Sender: FDA-Public Use
  Company Number: US-AKCEA THERAPEUTICS, INC.-2021IS001182

PATIENT
  Age: 59 Year
  Sex: Male

DRUGS (3)
  1. TEGSEDI [Suspect]
     Active Substance: INOTERSEN SODIUM
     Indication: Hereditary neuropathic amyloidosis
     Route: 058
     Dates: end: 20210214
  2. DEVICE [Suspect]
     Active Substance: DEVICE
  3. TAFAMIDIS [Suspect]
     Active Substance: TAFAMIDIS
     Route: 065
     Dates: start: 2021

REACTIONS (2)
  - Cardiac pacemaker insertion [Recovered/Resolved]
  - Blood test abnormal [Unknown]

NARRATIVE: CASE EVENT DATE: 20210201
